FAERS Safety Report 20567652 (Version 1)
Quarter: 2022Q1

REPORT INFORMATION
  Report Type: Spontaneous
  Country: CN (occurrence: CN)
  Receive Date: 20220308
  Receipt Date: 20220308
  Transmission Date: 20220423
  Serious: Yes (Other)
  Sender: FDA-Public Use
  Company Number: CN-JNJFOC-20220310937

PATIENT

DRUGS (3)
  1. IBUPROFEN [Suspect]
     Active Substance: IBUPROFEN
     Indication: Patent ductus arteriosus
     Route: 050
  2. IBUPROFEN [Suspect]
     Active Substance: IBUPROFEN
     Route: 050
  3. IBUPROFEN [Suspect]
     Active Substance: IBUPROFEN
     Route: 050

REACTIONS (6)
  - Product use in unapproved indication [Unknown]
  - Off label use [Unknown]
  - Neonatal gastrointestinal haemorrhage [Unknown]
  - Jaundice [Unknown]
  - Urine output decreased [Unknown]
  - Therapeutic response unexpected [Unknown]
